FAERS Safety Report 24075733 (Version 1)
Quarter: 2024Q3

REPORT INFORMATION
  Report Type: Spontaneous
  Country: FR (occurrence: FR)
  Receive Date: 20240710
  Receipt Date: 20240710
  Transmission Date: 20241016
  Serious: Yes (Hospitalization)
  Sender: TEVA
  Company Number: None

PATIENT
  Age: 23 Year
  Sex: Female

DRUGS (3)
  1. ALPRAZOLAM [Suspect]
     Active Substance: ALPRAZOLAM
     Indication: Depression
     Route: 048
     Dates: start: 20230705, end: 20230720
  2. LAMICTAL [Suspect]
     Active Substance: LAMOTRIGINE
     Indication: Depression
     Route: 048
     Dates: start: 20230705, end: 20230720
  3. PAROXETINE HYDROCHLORIDE [Concomitant]
     Active Substance: PAROXETINE HYDROCHLORIDE\PAROXETINE HYDROCHLORIDE ANHYDROUS
     Indication: Depression
     Dosage: 1 TABLET PER DAY, PAROXETINE (CHLORHYDRATE DE) ANHYDRE
     Route: 048
     Dates: start: 202207

REACTIONS (1)
  - Rash maculo-papular [Recovering/Resolving]

NARRATIVE: CASE EVENT DATE: 20230716
